FAERS Safety Report 19822798 (Version 1)
Quarter: 2021Q3

REPORT INFORMATION
  Report Type: Other
  Country: IE (occurrence: IE)
  Receive Date: 20210913
  Receipt Date: 20210913
  Transmission Date: 20211014
  Serious: Yes (Other)
  Sender: FDA-Public Use
  Company Number: IE-COLLEGIUM PHARMACEUTICAL, INC.-2021CGM01010

PATIENT
  Sex: Female

DRUGS (12)
  1. ONDANSETRON [Concomitant]
     Active Substance: ONDANSETRON
     Dosage: UNK
     Dates: start: 20210809
  2. DIFENE [Concomitant]
     Active Substance: DICLOFENAC SODIUM
     Dosage: UNK
     Dates: start: 20210810, end: 20210811
  3. DEXKETOPROFEN [Concomitant]
     Active Substance: DEXKETOPROFEN
     Dosage: UNK
     Dates: start: 20210809
  4. TAPENTADOL [Suspect]
     Active Substance: TAPENTADOL
     Indication: PROCEDURAL PAIN
     Dosage: 50 MG, ONCE
     Route: 048
     Dates: start: 20210810, end: 20210810
  5. TAPENTADOL [Suspect]
     Active Substance: TAPENTADOL
     Indication: FRACTURE PAIN
  6. DEXAMETHASONE. [Concomitant]
     Active Substance: DEXAMETHASONE
     Dosage: UNK
     Dates: start: 20210809
  7. PROPOFOL. [Concomitant]
     Active Substance: PROPOFOL
     Dosage: UNK
     Dates: start: 20210809
  8. CLONIDINE. [Concomitant]
     Active Substance: CLONIDINE
     Dosage: UNK
     Dates: start: 20210809
  9. ACTIQ [Concomitant]
     Active Substance: FENTANYL CITRATE
     Dosage: UNK
     Dates: start: 20210809, end: 20210811
  10. PARACETAMOL [Concomitant]
     Active Substance: ACETAMINOPHEN
     Dosage: UNK
     Dates: start: 20210809, end: 20210811
  11. SUBLIMAZE [Concomitant]
     Active Substance: FENTANYL CITRATE
     Dosage: UNK
     Dates: start: 20210809
  12. EPHEDRINE HYDROCHLORIDE [Concomitant]
     Active Substance: EPHEDRINE HYDROCHLORIDE
     Dosage: UNK
     Dates: start: 20210809

REACTIONS (3)
  - Emotional distress [Recovered/Resolved]
  - Blood pressure increased [Recovered/Resolved]
  - Hypersensitivity [Recovered/Resolved]

NARRATIVE: CASE EVENT DATE: 20210810
